FAERS Safety Report 7492655-2 (Version None)
Quarter: 2011Q2

REPORT INFORMATION
  Report Type: 
  Country: None (occurrence: None)
  Receive Date: 20110519
  Receipt Date: 20090930
  Transmission Date: 20111010
  Serious: Yes (Hospitalization, Other)
  Sender: FDA-Public Use
  Company Number: US-BAYER-200934661NA

PATIENT
  Age: 54 Year
  Sex: Female
  Weight: 120 kg

DRUGS (35)
  1. TRASYLOL [Suspect]
     Dosage: 199 ML OVER 20 MINUTES
     Route: 042
     Dates: start: 20040908, end: 20040908
  2. PREVACID [Concomitant]
     Dosage: UNK
  3. NEURONTIN [Concomitant]
     Dosage: 100 MG 2 TABS AT BEDTIME
     Route: 048
  4. LIPITOR [Concomitant]
     Dosage: 10 MG, QD
     Route: 048
  5. ASPIRIN [Concomitant]
     Dosage: 81 MG
     Route: 048
  6. ZINACEF [Concomitant]
     Dosage: 1.5 GM
     Route: 042
     Dates: start: 20040908, end: 20040908
  7. DOPAMINE HCL [Concomitant]
     Dosage: 3.5 - 18.3MCG/KG/MIN
     Route: 041
     Dates: start: 20040908, end: 20040908
  8. NITROGLYCERIN [Concomitant]
     Dosage: TITRATED
     Route: 041
     Dates: start: 20040908, end: 20040908
  9. LEVOPHED [Concomitant]
     Dosage: 4-11.3 MCG/MINUTE
     Route: 042
     Dates: start: 20040908, end: 20040908
  10. ZANTAC [Concomitant]
     Dosage: 50 MG
     Route: 042
     Dates: start: 20040908, end: 20040908
  11. VANCOMYCIN [Concomitant]
     Dosage: 2 GM
     Route: 042
     Dates: start: 20040908, end: 20040908
  12. ESMOLOL [Concomitant]
     Dosage: 50 MG
     Route: 040
     Dates: start: 20040908, end: 20040908
  13. EPINEPHRINE [Concomitant]
     Dosage: UNK
     Route: 042
     Dates: start: 20040908, end: 20040908
  14. PROTAMINE SULFATE [Concomitant]
     Dosage: 50MG/50MG/80MG
     Route: 042
     Dates: start: 20040908, end: 20040908
  15. BENADRYL [Concomitant]
     Dosage: 50 MG
     Route: 042
     Dates: start: 20040908, end: 20040908
  16. TRASYLOL [Suspect]
     Dosage: 50 ML/HOUR INFUSION
     Route: 042
     Dates: start: 20040908, end: 20040908
  17. NORVASC [Concomitant]
     Dosage: 10 MG, QD
     Route: 048
  18. LISINOPRIL [Concomitant]
     Dosage: 20 MG, QD
     Route: 048
  19. HUMALOG [Concomitant]
     Dosage: 3 TIMES PER DAY
     Route: 058
  20. ALBUMIN (HUMAN) [Concomitant]
     Dosage: 650 ML
     Route: 042
     Dates: start: 20040908, end: 20040908
  21. TRASYLOL [Suspect]
     Indication: CORONARY ARTERY BYPASS
     Dosage: 1 ML TEST DOSE
     Route: 042
     Dates: start: 20040908, end: 20040908
  22. DECADRON [Concomitant]
     Dosage: BOLUSES
     Route: 040
     Dates: start: 20040908, end: 20040908
  23. CLONIDINE [Concomitant]
     Dosage: 1 MG
     Route: 042
     Dates: start: 20040908, end: 20040908
  24. INSULIN [Concomitant]
     Dosage: 4-10 UNITS/HOUR
     Route: 041
     Dates: start: 20040908, end: 20040908
  25. BLOOD AND RELATED PRODUCTS [Concomitant]
     Dosage: 750 ML AUTOLOGUS
     Route: 042
     Dates: start: 20040908, end: 20040908
  26. ZOLOFT [Concomitant]
     Dosage: 50 MG, QD
     Route: 048
  27. ATIVAN [Concomitant]
     Dosage: 5 MG, PRN
     Route: 048
  28. CLONIDINE [Concomitant]
     Dosage: 0.2 MG, QD
     Route: 048
  29. HEPARIN [Concomitant]
     Dosage: 62,000 U
     Route: 042
     Dates: start: 20040908, end: 20040908
  30. METOPROLOL TARTRATE [Concomitant]
     Dosage: 2-3 MG BOLUSES
     Route: 040
  31. APRESOLINE [Concomitant]
     Dosage: 10-40 MG BOLUSES
     Route: 040
     Dates: start: 20040908, end: 20040908
  32. LANTUS [Concomitant]
     Dosage: 70 U, HS
     Route: 058
  33. PLAVIX [Concomitant]
     Dosage: 75 MG, QD
     Route: 048
  34. PROCRIT [Concomitant]
     Dosage: 10,000 U WEEKLY
     Route: 058
  35. NIPRIDE [Concomitant]
     Dosage: TITRATED
     Route: 041
     Dates: start: 20040908, end: 20040908

REACTIONS (9)
  - INJURY [None]
  - ANXIETY [None]
  - DEPRESSION [None]
  - ANHEDONIA [None]
  - UNEVALUABLE EVENT [None]
  - FEAR [None]
  - CEREBROVASCULAR ACCIDENT [None]
  - RENAL FAILURE [None]
  - PAIN [None]
